FAERS Safety Report 10249344 (Version 2)
Quarter: 2014Q2

REPORT INFORMATION
  Report Type: Spontaneous
  Country: JP (occurrence: JP)
  Receive Date: 20140620
  Receipt Date: 20140620
  Transmission Date: 20141212
  Serious: Yes (Other)
  Sender: FDA-Public Use
  Company Number: JP-PFIZER INC-2014157724

PATIENT
  Age: 83 Year
  Sex: Male

DRUGS (1)
  1. CORTRIL [Suspect]
     Indication: ADDISON^S DISEASE
     Dosage: 10 MG/DAY
     Route: 048

REACTIONS (1)
  - Cholecystitis [Recovered/Resolved]
